FAERS Safety Report 10985625 (Version 1)
Quarter: 2015Q2

REPORT INFORMATION
  Report Type: Spontaneous
  Country: US (occurrence: None)
  Receive Date: 20150403
  Receipt Date: 20150403
  Transmission Date: 20150821
  Serious: Yes (Life-Threatening, Hospitalization)
  Sender: FDA-Public Use
  Company Number: None

PATIENT
  Age: 47 Year
  Sex: Female
  Weight: 94.8 kg

DRUGS (11)
  1. DULCOLAX 10MG [Concomitant]
  2. MORPHINE [Concomitant]
     Active Substance: MORPHINE
  3. ONDANSETRON 4-8 MG [Concomitant]
  4. MIRALAX 17 GM [Concomitant]
  5. HEPARIN [Concomitant]
     Active Substance: HEPARIN SODIUM
  6. LORAZEPAM. [Concomitant]
     Active Substance: LORAZEPAM
  7. FENTANYL TRANSDERMAL SYSTEM [Concomitant]
     Active Substance: FENTANYL
  8. AMLODIPINE [Concomitant]
     Active Substance: AMLODIPINE BESYLATE
  9. METOCLOPRAMIDE. [Concomitant]
     Active Substance: METOCLOPRAMIDE
  10. VELIPARIB [Suspect]
     Active Substance: VELIPARIB
     Indication: OVARIAN CANCER STAGE IV
     Dosage: 4 PILLS
     Route: 048
     Dates: start: 20140501, end: 20150309
  11. HEMODIALYSIS [Concomitant]
     Active Substance: DEVICE

REACTIONS (5)
  - Syncope [None]
  - Hypotension [None]
  - Haemorrhage intracranial [None]
  - Pulmonary embolism [None]
  - Liver disorder [None]

NARRATIVE: CASE EVENT DATE: 20150319
